FAERS Safety Report 14958650 (Version 1)
Quarter: 2018Q2

REPORT INFORMATION
  Report Type: Spontaneous
  Country: US (occurrence: US)
  Receive Date: 20180531
  Receipt Date: 20180531
  Transmission Date: 20180711
  Serious: Yes (Other)
  Sender: FDA-Public Use
  Company Number: US-BAYER-2018-102422

PATIENT
  Sex: Female

DRUGS (1)
  1. ALEVE [Suspect]
     Active Substance: NAPROXEN SODIUM

REACTIONS (10)
  - Ear pruritus [Recovering/Resolving]
  - Tremor [Recovering/Resolving]
  - Peripheral swelling [Recovering/Resolving]
  - Anaphylactic shock [Recovering/Resolving]
  - Pruritus [Recovering/Resolving]
  - Swollen tongue [Recovering/Resolving]
  - Heart rate increased [Recovering/Resolving]
  - Paraesthesia [Recovering/Resolving]
  - Lip swelling [Recovering/Resolving]
  - Eye disorder [Recovering/Resolving]

NARRATIVE: CASE EVENT DATE: 20180526
